FAERS Safety Report 6980287-1 (Version None)
Quarter: 2010Q3

REPORT INFORMATION
  Report Type: 
  Country: None (occurrence: None)
  Receive Date: 20100914
  Receipt Date: 20100910
  Transmission Date: 20110219
  Serious: Yes (Death)
  Sender: FDA-Public Use
  Company Number: US-BAYER-201033301NA

PATIENT
  Age: 59 Year
  Sex: Female
  Weight: 49 kg

DRUGS (7)
  1. SORAFENIB [Suspect]
     Indication: HEPATIC NEOPLASM MALIGNANT
     Dosage: TOTAL DAILY DOSE: 800 MG  UNIT DOSE: 200 MG
     Route: 048
     Dates: start: 20100521, end: 20100823
  2. IMC-A12 (CIXUTUMUMAB) [Suspect]
     Indication: HEPATIC NEOPLASM MALIGNANT
     Dosage: UNIT DOSE: 20 MG/KG
     Route: 042
     Dates: start: 20100521, end: 20100805
  3. AMLODIPINE BESYLATE [Concomitant]
  4. DIAZEPAM [Concomitant]
  5. IMODIUM [Concomitant]
  6. NEOSPORIN [Concomitant]
  7. K-DUR [Concomitant]

REACTIONS (1)
  - DEATH [None]
